FAERS Safety Report 15799559 (Version 1)
Quarter: 2019Q1

REPORT INFORMATION
  Report Type: Spontaneous
  Country: GB (occurrence: GB)
  Receive Date: 20190108
  Receipt Date: 20190108
  Transmission Date: 20190417
  Serious: Yes (Hospitalization)
  Sender: FDA-Public Use
  Company Number: GB-ACCORD-101278

PATIENT
  Age: 89 Year
  Sex: Male

DRUGS (11)
  1. FOLIC ACID. [Concomitant]
     Active Substance: FOLIC ACID
  2. SALBUTAMOL [Concomitant]
     Active Substance: ALBUTEROL
     Dosage: PUFFS
  3. ADCAL-D3 [Concomitant]
     Active Substance: CALCIUM CARBONATE\CHOLECALCIFEROL
  4. LACTULOSE. [Concomitant]
     Active Substance: LACTULOSE
  5. MEMANTINE/MEMANTINE HYDROCHLORIDE [Concomitant]
     Dosage: AT NIGHT
  6. CLOPIDOGREL [Suspect]
     Active Substance: CLOPIDOGREL BISULFATE
     Indication: PRODUCT USED FOR UNKNOWN INDICATION
  7. PARACETAMOL [Concomitant]
     Active Substance: ACETAMINOPHEN
     Dosage: AT NIGHT
  8. HYDROXOCOBALAMIN [Concomitant]
     Active Substance: HYDROXOCOBALAMIN
  9. ISOSORBIDE. [Concomitant]
     Active Substance: ISOSORBIDE
     Dosage: MODIFIED RELEASE
  10. IBUPROFEN. [Concomitant]
     Active Substance: IBUPROFEN
     Dosage: AT NIGHT
  11. MACROGOL/MACROGOL STEARATE [Concomitant]
     Dosage: SACHETS SUGAR FREE

REACTIONS (1)
  - Rectal haemorrhage [Unknown]
